FAERS Safety Report 5838561-8 (Version None)
Quarter: 2008Q3

REPORT INFORMATION
  Report Type: 
  Country: None (occurrence: None)
  Receive Date: 20080808
  Receipt Date: 20080801
  Transmission Date: 20090109
  Serious: Yes (Other)
  Sender: FDA-Public Use
  Company Number: JP-ASTRAZENECA-2008AP04055

PATIENT
  Age: 60 Year
  Sex: Female
  Weight: 43 kg

DRUGS (7)
  1. CRESTOR [Suspect]
     Indication: HYPERLIPIDAEMIA
     Route: 048
     Dates: start: 20071025, end: 20080401
  2. ASPARA-CA [Concomitant]
     Indication: OSTEOPOROSIS
     Route: 048
  3. ONEALFA [Concomitant]
     Indication: OSTEOPOROSIS
     Route: 048
  4. METFORMIN HCL [Concomitant]
     Indication: DIABETES MELLITUS
     Route: 048
     Dates: end: 20060406
  5. METFORMIN HCL [Concomitant]
     Route: 048
     Dates: start: 20060407, end: 20070926
  6. METFORMIN HCL [Concomitant]
     Dosage: 250 MG FOR MORNING DOSE, 500 MG FOR EVENING DOSE
     Route: 048
     Dates: start: 20070927
  7. BUTAMIDE [Concomitant]
     Indication: DIABETES MELLITUS
     Route: 048
     Dates: start: 20060516

REACTIONS (2)
  - BACK PAIN [None]
  - MALAISE [None]
